FAERS Safety Report 6029593-8 (Version None)
Quarter: 2009Q1

REPORT INFORMATION
  Report Type: 
  Country: None (occurrence: None)
  Receive Date: 20090107
  Receipt Date: 20081230
  Transmission Date: 20090719
  Serious: Yes (Hospitalization, Other)
  Sender: FDA-Public Use
  Company Number: US-ELI_LILLY_AND_COMPANY-US200812002364

PATIENT
  Sex: Male
  Weight: 110 kg

DRUGS (6)
  1. BYETTA [Suspect]
     Dosage: 10 UG, 2/D
     Route: 065
     Dates: start: 20070901, end: 20071202
  2. METFORMIN HCL [Concomitant]
     Dosage: 500 MG, 2/D
     Route: 048
  3. ZOCOR [Concomitant]
     Dosage: 20 MG, DAILY (1/D)
     Route: 048
  4. NEXIUM [Concomitant]
     Dosage: 20 MG, DAILY (1/D)
     Route: 048
     Dates: end: 20071201
  5. NEXIUM [Concomitant]
     Dosage: 40 MG, DAILY (1/D)
     Route: 048
     Dates: start: 20071201
  6. ASPIRIN [Concomitant]
     Dosage: 81 MG, DAILY (1/D)
     Route: 048

REACTIONS (3)
  - HYPOKALAEMIA [None]
  - ILEUS [None]
  - PANCREATITIS [None]
